FAERS Safety Report 8140524-7 (Version None)
Quarter: 2012Q1

REPORT INFORMATION
  Report Type: 
  Country: None (occurrence: None)
  Receive Date: 20120214
  Receipt Date: 20120214
  Transmission Date: 20120608
  Serious: No
  Sender: FDA-Public Use
  Company Number: None

PATIENT
  Age: 66 Year
  Sex: Male
  Weight: 94.3 kg

DRUGS (1)
  1. PRASUGREL [Suspect]
     Indication: ANGIOGRAM
     Dosage: 10 MG EVERY DAY PO
     Route: 048
     Dates: start: 20111214, end: 20120209

REACTIONS (5)
  - PALPITATIONS [None]
  - FEELING ABNORMAL [None]
  - HYPERTENSION [None]
  - COUGH [None]
  - WHEEZING [None]
